FAERS Safety Report 18286043 (Version 15)
Quarter: 2023Q4

REPORT INFORMATION
  Report Type: Report from Study
  Country: AR (occurrence: AR)
  Receive Date: 20200919
  Receipt Date: 20231214
  Transmission Date: 20240109
  Serious: Yes (Hospitalization, Other)
  Sender: FDA-Public Use
  Company Number: AR-002147023-NVSC2020AR246836

PATIENT

DRUGS (7)
  1. RUXOLITINIB [Suspect]
     Active Substance: RUXOLITINIB
     Indication: Myelofibrosis
     Dosage: 15 MG, BID
     Route: 048
     Dates: start: 20150301
  2. RUXOLITINIB [Suspect]
     Active Substance: RUXOLITINIB
     Dosage: 30 MG, BID
     Route: 048
     Dates: start: 20150301
  3. RUXOLITINIB [Suspect]
     Active Substance: RUXOLITINIB
     Dosage: 20 MG, QD
     Route: 048
     Dates: start: 20150301
  4. RUXOLITINIB [Suspect]
     Active Substance: RUXOLITINIB
     Dosage: 15 MG, QD
     Route: 048
     Dates: start: 20150301
  5. RUXOLITINIB [Suspect]
     Active Substance: RUXOLITINIB
     Dosage: 30 MG
     Route: 048
     Dates: start: 20150311
  6. RUXOLITINIB [Suspect]
     Active Substance: RUXOLITINIB
     Dosage: 7.5 MG, QD
     Route: 047
  7. RUXOLITINIB [Suspect]
     Active Substance: RUXOLITINIB
     Dosage: UNK (TAKING HALF A TABLET)
     Route: 048
     Dates: start: 202208

REACTIONS (26)
  - Agitation [Unknown]
  - Anxiety [Unknown]
  - Thrombosis [Unknown]
  - Feeling abnormal [Unknown]
  - Discomfort [Unknown]
  - Malignant neoplasm progression [Unknown]
  - Myelofibrosis [Unknown]
  - Dizziness [Unknown]
  - Total lung capacity decreased [Unknown]
  - Total lung capacity increased [Unknown]
  - Dyspnoea [Unknown]
  - Confusional state [Unknown]
  - Mental disorder [Unknown]
  - Incorrect route of product administration [Unknown]
  - Renal pain [Unknown]
  - Malaise [Unknown]
  - Myopia [Unknown]
  - Nervousness [Unknown]
  - Nephrolithiasis [Unknown]
  - Somnolence [Unknown]
  - Abdominal pain upper [Unknown]
  - Wrong technique in product usage process [Unknown]
  - Off label use [Unknown]
  - Fatigue [Unknown]
  - Inappropriate schedule of product administration [Unknown]
  - Vomiting [Unknown]

NARRATIVE: CASE EVENT DATE: 20150301
